FAERS Safety Report 24051400 (Version 1)
Quarter: 2024Q3

REPORT INFORMATION
  Report Type: Spontaneous
  Country: US (occurrence: US)
  Receive Date: 20240704
  Receipt Date: 20240704
  Transmission Date: 20241016
  Serious: Yes (Other)
  Sender: NOVARTIS
  Company Number: US-002147023-NVSC2024US138118

PATIENT
  Sex: Female

DRUGS (1)
  1. LEQVIO [Suspect]
     Active Substance: INCLISIRAN SODIUM
     Indication: Low density lipoprotein increased
     Dosage: 284 MG (Q 6 MONTHS)
     Route: 058
     Dates: start: 20240702

REACTIONS (2)
  - Mast cell activation syndrome [Unknown]
  - Dysphagia [Unknown]

NARRATIVE: CASE EVENT DATE: 20240702
